FAERS Safety Report 6304502-2 (Version None)
Quarter: 2009Q3

REPORT INFORMATION
  Report Type: 
  Country: None (occurrence: None)
  Receive Date: 20090806
  Receipt Date: 20090724
  Transmission Date: 20100115
  Serious: Yes (Death, Life-Threatening, Hospitalization)
  Sender: FDA-Public Use
  Company Number: 8049667

PATIENT
  Age: 17 Year
  Sex: Female

DRUGS (21)
  1. KEPPRA [Suspect]
     Dosage: NI IV
     Route: 042
     Dates: start: 20081206
  2. INIPOMP /01263201/ [Suspect]
     Indication: GASTROINTESTINAL ULCER
     Dosage: NI IV
     Route: 042
     Dates: start: 20081201
  3. GARDENAL /00023201/ [Suspect]
     Dosage: NI IV
     Route: 042
     Dates: start: 20081201
  4. TAZOCILLINE [Suspect]
     Dosage: NI IV
     Route: 042
     Dates: start: 20081225
  5. VANCOMYCIN [Suspect]
     Dosage: NI IV
     Route: 042
     Dates: start: 20081201
  6. DIPRIVAN [Suspect]
     Indication: SEDATION
     Dosage: NI IV
     Route: 042
     Dates: start: 20081228
  7. PENTOTHAL [Suspect]
     Indication: SEDATION
     Dosage: NI IV
     Route: 042
     Dates: start: 20081208
  8. DEPAKENE [Suspect]
     Indication: CONVULSION
     Dosage: NI IV
     Route: 042
     Dates: start: 20081226
  9. AMIKLIN /00391001/ [Suspect]
     Indication: ESCHERICHIA INFECTION
     Dosage: NI IV
     Route: 042
     Dates: start: 20081225
  10. URBANYL [Suspect]
     Indication: CONVULSION
     Dosage: NI IV
     Route: 042
     Dates: start: 20081215
  11. ENDOXAN /00021101/ [Suspect]
     Indication: SJOGREN'S SYNDROME
     Dosage: NI IV
     Route: 042
     Dates: start: 20081211
  12. PRODILANTIN [Suspect]
     Indication: CONVULSION
     Dosage: NI IV
     Route: 042
     Dates: start: 20081209
  13. SUFENTA [Suspect]
     Indication: SEDATION
     Dosage: NI IV
     Route: 042
     Dates: start: 20081129, end: 20081225
  14. MIDAZOLAM HCL [Concomitant]
  15. NEUPOGEN [Concomitant]
  16. DUPHALAC [Concomitant]
  17. SOLU-MEDROL [Concomitant]
  18. NEUPOGEN [Concomitant]
  19. PARACETAMOL [Concomitant]
  20. NEOSTIGMINE [Concomitant]
  21. NORADRENALINE [Concomitant]

REACTIONS (14)
  - ACUTE RESPIRATORY FAILURE [None]
  - AGRANULOCYTOSIS [None]
  - BACTERAEMIA [None]
  - DRUG RESISTANCE [None]
  - DRUG TOXICITY [None]
  - ENCEPHALITIS [None]
  - HISTIOCYTOSIS HAEMATOPHAGIC [None]
  - HYPERAMMONAEMIA [None]
  - HYPERCAPNIA [None]
  - MULTI-ORGAN FAILURE [None]
  - RENAL FAILURE ACUTE [None]
  - SEPTIC SHOCK [None]
  - SJOGREN'S SYNDROME [None]
  - STATUS EPILEPTICUS [None]
